FAERS Safety Report 8285733-1 (Version None)
Quarter: 2012Q2

REPORT INFORMATION
  Report Type: 
  Country: None (occurrence: None)
  Receive Date: 20120413
  Receipt Date: 20120412
  Transmission Date: 20120825
  Serious: Yes (Death, Other)
  Sender: FDA-Public Use
  Company Number: CN-ROCHE-1058952

PATIENT
  Age: 81 Year
  Sex: Female

DRUGS (1)
  1. MABTHERA [Suspect]
     Indication: DIFFUSE LARGE B-CELL LYMPHOMA
     Dosage: TWO KINDS OF FORM STRENGTH FOR RITUXIMAB(500MG/50ML;100MG/10ML) WERE ADMINISTERED.
     Route: 041
     Dates: start: 20110830

REACTIONS (2)
  - NEOPLASM [None]
  - RESPIRATORY FAILURE [None]
